FAERS Safety Report 22316498 (Version 2)
Quarter: 2023Q2

REPORT INFORMATION
  Report Type: Spontaneous
  Country: FR (occurrence: None)
  Receive Date: 20230513
  Receipt Date: 20230518
  Transmission Date: 20230722
  Serious: Yes (Death, Other)
  Sender: FDA-Public Use
  Company Number: FR-ROCHE-3345033

PATIENT
  Age: 79 Year
  Sex: Male
  Weight: 174 kg

DRUGS (1)
  1. ESBRIET [Suspect]
     Active Substance: PIRFENIDONE
     Indication: Idiopathic pulmonary fibrosis
     Dosage: CPS 84
     Route: 048
     Dates: start: 202304

REACTIONS (4)
  - Cardiac failure [Unknown]
  - Rash [Unknown]
  - Eosinophilia [Unknown]
  - Dyspnoea [Fatal]

NARRATIVE: CASE EVENT DATE: 20230502
